FAERS Safety Report 16853490 (Version 2)
Quarter: 2019Q4

REPORT INFORMATION
  Report Type: Report from Study
  Country: None (occurrence: US)
  Receive Date: 20190925
  Receipt Date: 20191112
  Transmission Date: 20200122
  Serious: Yes (Hospitalization)
  Sender: FDA-Public Use
  Company Number: US-ABBVIE-19K-163-2718136-00

PATIENT
  Sex: Female

DRUGS (2)
  1. HUMIRA [Suspect]
     Active Substance: ADALIMUMAB
     Indication: CROHN^S DISEASE
     Route: 058
  2. HUMIRA [Suspect]
     Active Substance: ADALIMUMAB
     Route: 058

REACTIONS (6)
  - Depression [Not Recovered/Not Resolved]
  - Injection site pain [Unknown]
  - Iron deficiency anaemia [Not Recovered/Not Resolved]
  - Sciatica [Not Recovered/Not Resolved]
  - Dyspnoea [Recovered/Resolved]
  - Colitis microscopic [Not Recovered/Not Resolved]
